FAERS Safety Report 4307858-5 (Version None)
Quarter: 2004Q1

REPORT INFORMATION
  Report Type: 
  Country: None (occurrence: None)
  Receive Date: 20040225
  Receipt Date: 20030417
  Transmission Date: 20041129
  Serious: Yes (Other)
  Sender: FDA-Public Use
  Company Number: WAES 0304USA01858

PATIENT
  Age: 44 Year
  Sex: Male

DRUGS (1)
  1. ZOCOR [Suspect]
     Dosage: 20MG/DAILY/PO
     Route: 048
     Dates: start: 20021001, end: 20030201

REACTIONS (1)
  - RHABDOMYOLYSIS [None]
